FAERS Safety Report 20094683 (Version 2)
Quarter: 2021Q4

REPORT INFORMATION
  Report Type: Report from Study
  Country: CA (occurrence: CA)
  Receive Date: 20211122
  Receipt Date: 20211209
  Transmission Date: 20220303
  Serious: Yes (Other)
  Sender: FDA-Public Use
  Company Number: CA-ABBVIE-21K-028-4167488-00

PATIENT
  Sex: Female

DRUGS (2)
  1. HUMIRA [Suspect]
     Active Substance: ADALIMUMAB
     Indication: Rheumatoid arthritis
     Route: 058
     Dates: start: 20200210, end: 202106
  2. HUMIRA [Suspect]
     Active Substance: ADALIMUMAB
     Route: 058
     Dates: start: 2021

REACTIONS (8)
  - Loss of consciousness [Unknown]
  - Eye laser surgery [Unknown]
  - Visual impairment [Not Recovered/Not Resolved]
  - Malaise [Recovering/Resolving]
  - Corneal abrasion [Unknown]
  - Post procedural swelling [Recovering/Resolving]
  - Procedural pain [Recovering/Resolving]
  - Post procedural complication [Not Recovered/Not Resolved]

NARRATIVE: CASE EVENT DATE: 20210101
